FAERS Safety Report 9279561 (Version 3)
Quarter: 2013Q3

REPORT INFORMATION
  Report Type: Report from Study
  Country: CA (occurrence: CA)
  Receive Date: 20130509
  Receipt Date: 20130829
  Transmission Date: 20140515
  Serious: Yes (Hospitalization, Other)
  Sender: FDA-Public Use
  Company Number: CA-ROCHE-1222018

PATIENT
  Age: 40 Year
  Sex: Female
  Weight: 67 kg

DRUGS (7)
  1. DIPHENHYDRAMINE HCL [Concomitant]
     Route: 048
     Dates: start: 20121128
  2. METHYLPREDNISOLONE [Concomitant]
     Route: 042
     Dates: start: 20121128
  3. IMURAN [Concomitant]
  4. SULFATRIM [Concomitant]
  5. RITUXAN [Suspect]
     Indication: GRANULOMATOSIS WITH POLYANGIITIS
     Route: 042
     Dates: start: 20121128
  6. RITUXAN [Suspect]
     Indication: GRANULOMATOSIS WITH POLYANGIITIS
  7. ACETAMINOPHEN [Concomitant]
     Route: 048
     Dates: start: 20121128

REACTIONS (6)
  - Schwannoma [Unknown]
  - Joint dislocation [Unknown]
  - Antineutrophil cytoplasmic antibody decreased [Recovering/Resolving]
  - Arthralgia [Unknown]
  - Granulomatosis with polyangiitis [Not Recovered/Not Resolved]
  - Antibody test abnormal [Unknown]
